FAERS Safety Report 12293505 (Version 1)
Quarter: 2016Q2

REPORT INFORMATION
  Report Type: Spontaneous
  Country: US (occurrence: US)
  Receive Date: 20160421
  Receipt Date: 20160421
  Transmission Date: 20160815
  Serious: No
  Sender: FDA-Public Use
  Company Number: US-ALEXION-A201602744

PATIENT
  Sex: Male

DRUGS (1)
  1. SEBELIPASE ALFA [Suspect]
     Active Substance: SEBELIPASE ALFA
     Indication: LYSOSOMAL ACID LIPASE DEFICIENCY
     Route: 042

REACTIONS (4)
  - Vomiting [Unknown]
  - Cough [Unknown]
  - Headache [Unknown]
  - Abdominal pain upper [Unknown]
